FAERS Safety Report 6013306-X (Version None)
Quarter: 2008Q4

REPORT INFORMATION
  Report Type: 
  Country: None (occurrence: None)
  Receive Date: 20081219
  Receipt Date: 20081208
  Transmission Date: 20090506
  Serious: Yes (Other)
  Sender: FDA-Public Use
  Company Number: US-AMGEN-US314979

PATIENT
  Sex: Male

DRUGS (8)
  1. NPLATE [Suspect]
     Indication: IDIOPATHIC THROMBOCYTOPENIC PURPURA
     Dates: start: 20080922
  2. NEXIUM [Concomitant]
  3. FLOMAX [Concomitant]
  4. LOVASTATIN [Concomitant]
  5. ALBUTEROL [Concomitant]
  6. FOLIC ACID [Concomitant]
  7. IMMUNE GLOBULIN NOS [Concomitant]
     Route: 042
  8. RITUXIMAB [Concomitant]
     Dates: start: 20080910, end: 20080920

REACTIONS (2)
  - INFECTION [None]
  - PLATELET COUNT DECREASED [None]
